FAERS Safety Report 19944234 (Version 2)
Quarter: 2022Q3

REPORT INFORMATION
  Report Type: Spontaneous
  Country: US (occurrence: US)
  Receive Date: 20211011
  Receipt Date: 20220707
  Transmission Date: 20221027
  Serious: No
  Sender: FDA-Public Use
  Company Number: US-JUBILANT CADISTA PHARMACEUTICALS-2021JUB00184

PATIENT
  Age: 60 Year
  Sex: Female
  Weight: 104.78 kg

DRUGS (10)
  1. PREDNISONE [Suspect]
     Active Substance: PREDNISONE
     Indication: Giant cell arteritis
     Dosage: HIGHER DOSE, 1X/DAY AT 2:30 PM
     Dates: start: 20201224
  2. PREDNISONE [Suspect]
     Active Substance: PREDNISONE
     Dosage: ^WEANING OFF,^ 1X/DAY
  3. PREDNISONE [Suspect]
     Active Substance: PREDNISONE
     Dosage: 3 MG ALONG WITH PREDNISONE 5 MG FOR TOTAL DOSE OF 8 MG, 1X/DAY AT 2:30 PM
  4. PREDNISONE [Suspect]
     Active Substance: PREDNISONE
     Indication: Giant cell arteritis
     Dosage: 60 MG, 1X/DAY AT 2:30 PM
     Dates: start: 20201224
  5. PREDNISONE [Suspect]
     Active Substance: PREDNISONE
     Dosage: ^WEANING OFF,^ 1X/DAY
  6. PREDNISONE [Suspect]
     Active Substance: PREDNISONE
     Dosage: 5 MG ALONG WITH PREDNISONE 1 MG FOR TOTAL DOSE OF 8 MG, 1X/DAY AT 2:30 PM
  7. PFIZER-BIONTECH COVID-19 VACCINE [Suspect]
     Active Substance: TOZINAMERAN
     Indication: COVID-19 prophylaxis
     Dosage: UNK, RIGHT ARM
     Dates: start: 20210608, end: 20210608
  8. LIPITOR [Concomitant]
     Active Substance: ATORVASTATIN CALCIUM
     Dosage: 20 MG, 1X/DAY
  9. FISH OIL [Concomitant]
     Active Substance: FISH OIL
     Dosage: 2000 MG, 1X/DAY
  10. EFFEXOR [Concomitant]
     Active Substance: VENLAFAXINE HYDROCHLORIDE
     Dosage: 150 MG, 1X/DAY

REACTIONS (8)
  - Nausea [Recovering/Resolving]
  - Dyspnoea [Recovering/Resolving]
  - Diarrhoea [Recovering/Resolving]
  - Hyperventilation [Recovering/Resolving]
  - Malaise [Recovering/Resolving]
  - Fear [Recovering/Resolving]
  - Weight increased [Unknown]
  - Headache [Recovering/Resolving]

NARRATIVE: CASE EVENT DATE: 20210608
